FAERS Safety Report 12931333 (Version 1)
Quarter: 2016Q4

REPORT INFORMATION
  Report Type: Spontaneous
  Country: US (occurrence: US)
  Receive Date: 20161110
  Receipt Date: 20161110
  Transmission Date: 20170207
  Serious: No
  Sender: FDA-Public Use
  Company Number: US-JAZZ-2016-US-017703

PATIENT
  Sex: Female

DRUGS (10)
  1. XYREM [Suspect]
     Active Substance: SODIUM OXYBATE
     Dosage: 4.5 G, BID
     Route: 048
     Dates: start: 201408
  2. RIZATRIPTAN. [Concomitant]
     Active Substance: RIZATRIPTAN
  3. ADDERALL [Concomitant]
     Active Substance: AMPHETAMINE ASPARTATE\AMPHETAMINE SULFATE\DEXTROAMPHETAMINE SACCHARATE\DEXTROAMPHETAMINE SULFATE
  4. MULTIVITAMINS [Concomitant]
     Active Substance: VITAMINS
  5. LEXAPRO [Concomitant]
     Active Substance: ESCITALOPRAM OXALATE
  6. PROVIGIL [Concomitant]
     Active Substance: MODAFINIL
  7. XYREM [Suspect]
     Active Substance: SODIUM OXYBATE
     Indication: HYPERSOMNIA
     Dosage: 2.25 G, BID
     Route: 048
     Dates: start: 200609, end: 200611
  8. XYREM [Suspect]
     Active Substance: SODIUM OXYBATE
     Dosage: DOSE ADJUSTMENTS
     Route: 048
     Dates: start: 200611, end: 201408
  9. TROKENDI [Concomitant]
     Active Substance: TOPIRAMATE
  10. NUVIGIL [Concomitant]
     Active Substance: ARMODAFINIL

REACTIONS (1)
  - Attention deficit/hyperactivity disorder [Unknown]

NARRATIVE: CASE EVENT DATE: 2015
